FAERS Safety Report 19280145 (Version 1)
Quarter: 2021Q2

REPORT INFORMATION
  Report Type: Spontaneous
  Country: GB (occurrence: GB)
  Receive Date: 20210520
  Receipt Date: 20210520
  Transmission Date: 20210717
  Serious: Yes (Hospitalization, Other)
  Sender: FDA-Public Use
  Company Number: GB-PERRIGO-21GB006223

PATIENT

DRUGS (1)
  1. PARACETAMOL [Suspect]
     Active Substance: ACETAMINOPHEN
     Indication: TENSION HEADACHE
     Dosage: 1 G EVERY 6 H

REACTIONS (5)
  - Maternal exposure during pregnancy [Recovered/Resolved]
  - Toxicity to various agents [Recovered/Resolved]
  - Hyperemesis gravidarum [Recovering/Resolving]
  - Condition aggravated [Recovering/Resolving]
  - Liver function test abnormal [Recovered/Resolved]
